FAERS Safety Report 25668270 (Version 3)
Quarter: 2025Q3

REPORT INFORMATION
  Report Type: Spontaneous
  Country: CL (occurrence: CL)
  Receive Date: 20250812
  Receipt Date: 20250829
  Transmission Date: 20251021
  Serious: Yes (Death, Hospitalization)
  Sender: ROCHE
  Company Number: CL-ROCHE-10000358779

PATIENT
  Age: 84 Year
  Sex: Female

DRUGS (1)
  1. POLATUZUMAB VEDOTIN [Suspect]
     Active Substance: POLATUZUMAB VEDOTIN
     Indication: Product used for unknown indication
     Route: 065
     Dates: start: 202506

REACTIONS (2)
  - Death [Fatal]
  - Chronic disease decompensation [Unknown]

NARRATIVE: CASE EVENT DATE: 20250801
